FAERS Safety Report 5353744-1 (Version None)
Quarter: 2007Q2

REPORT INFORMATION
  Report Type: 
  Country: None (occurrence: None)
  Receive Date: 20070608
  Receipt Date: 20070608
  Transmission Date: 20071010
  Serious: Yes (Death, Life-Threatening, Hospitalization)
  Sender: FDA-Public Use
  Company Number: None

PATIENT
  Age: 78 Year
  Sex: Male

DRUGS (10)
  1. WARFARIN [Suspect]
     Indication: ATRIAL FIBRILLATION
     Dosage: 3 MG DAILY PO
     Route: 048
  2. GEMFIBROZIL [Concomitant]
  3. CLONAZEPAM [Concomitant]
  4. SINEMET [Concomitant]
  5. METOPROLOL SUCCINATE [Concomitant]
  6. AMANTADINE HCL [Concomitant]
  7. CALCITRIOL [Concomitant]
  8. CALCIUM CARBONATE [Concomitant]
  9. PROTONIX [Concomitant]
  10. LASIX [Concomitant]

REACTIONS (6)
  - GASTROINTESTINAL HAEMORRHAGE [None]
  - HYDROCEPHALUS [None]
  - INTERNATIONAL NORMALISED RATIO INCREASED [None]
  - MENTAL STATUS CHANGES [None]
  - SUBARACHNOID HAEMORRHAGE [None]
  - SUBDURAL HAEMATOMA [None]
